FAERS Safety Report 5470175-4 (Version None)
Quarter: 2007Q3

REPORT INFORMATION
  Report Type: 
  Country: None (occurrence: None)
  Receive Date: 20070924
  Receipt Date: 20070916
  Transmission Date: 20080115
  Serious: Yes (Other)
  Sender: FDA-Public Use
  Company Number: CHPA2007US09802

PATIENT
  Age: 72 Year
  Sex: Female
  Weight: 70.7 kg

DRUGS (1)
  1. MAALOX ANTACID/ANTIGAS MAX LIQ (NCH)(MAGNESIUM HYDROXIDE, ALUMINIUM HY [Suspect]
     Dosage: ORAL
     Route: 048
     Dates: start: 20070910, end: 20070910

REACTIONS (3)
  - DIARRHOEA [None]
  - FAECES DISCOLOURED [None]
  - GASTRIC HAEMORRHAGE [None]
